FAERS Safety Report 9018383 (Version 1)
Quarter: 2013Q1

REPORT INFORMATION
  Report Type: Spontaneous
  Country: US (occurrence: US)
  Receive Date: 20130118
  Receipt Date: 20130118
  Transmission Date: 20140127
  Serious: No
  Sender: FDA-Public Use
  Company Number: US-PFIZER INC-2013021970

PATIENT
  Age: 56 Year
  Sex: Female
  Weight: 70.75 kg

DRUGS (1)
  1. LIPITOR [Suspect]
     Indication: BLOOD CHOLESTEROL INCREASED
     Dosage: UNK
     Route: 048
     Dates: start: 201212

REACTIONS (2)
  - Chest discomfort [Recovered/Resolved]
  - Drug ineffective [Unknown]
